FAERS Safety Report 15405954 (Version 1)
Quarter: 2018Q3

REPORT INFORMATION
  Report Type: Spontaneous
  Country: US (occurrence: US)
  Receive Date: 20180920
  Receipt Date: 20180920
  Transmission Date: 20181010
  Serious: No
  Sender: FDA-Public Use
  Company Number: US-PFIZER INC-2018377611

PATIENT
  Age: 44 Year
  Sex: Male

DRUGS (1)
  1. GENOTROPIN [Suspect]
     Active Substance: SOMATROPIN
     Dosage: 0.5 MG, DAILY
     Dates: start: 20160727

REACTIONS (11)
  - LDL/HDL ratio increased [Unknown]
  - Red blood cell count increased [Unknown]
  - Blood prolactin decreased [Recovering/Resolving]
  - Blood glucose increased [Unknown]
  - Blood testosterone increased [Unknown]
  - High density lipoprotein decreased [Unknown]
  - Blood alkaline phosphatase decreased [Unknown]
  - Low density lipoprotein increased [Unknown]
  - Blood cholesterol increased [Unknown]
  - Blood thyroid stimulating hormone decreased [Unknown]
  - Monocyte count increased [Unknown]

NARRATIVE: CASE EVENT DATE: 20170301
